FAERS Safety Report 23673628 (Version 7)
Quarter: 2024Q3

REPORT INFORMATION
  Report Type: Spontaneous
  Country: GR (occurrence: GR)
  Receive Date: 20240326
  Receipt Date: 20240906
  Transmission Date: 20241016
  Serious: No
  Sender: PFIZER
  Company Number: GR-PFIZER INC-PV202400034008

PATIENT
  Age: 15 Year
  Sex: Male
  Weight: 53 kg

DRUGS (2)
  1. GENOTROPIN [Suspect]
     Active Substance: SOMATROPIN
     Indication: Growth hormone deficiency
     Dosage: 11 MG, WEEKLY
     Route: 058
     Dates: start: 201404
  2. GENOTROPIN [Suspect]
     Active Substance: SOMATROPIN
     Dosage: 11 MG, WEEKLY
     Route: 058
     Dates: start: 201404

REACTIONS (5)
  - Device defective [Unknown]
  - Incorrect dose administered by device [Unknown]
  - Intentional dose omission [Unknown]
  - Product communication issue [Unknown]
  - Product administration error [Unknown]

NARRATIVE: CASE EVENT DATE: 20240309
